FAERS Safety Report 8439180-X (Version None)
Quarter: 2012Q2

REPORT INFORMATION
  Report Type: 
  Country: None (occurrence: None)
  Receive Date: 20120615
  Receipt Date: 20120605
  Transmission Date: 20120825
  Serious: Yes (Death)
  Sender: FDA-Public Use
  Company Number: PHHY2012SA050964

PATIENT
  Sex: Male

DRUGS (3)
  1. SCOPOLAMINE BUTYLBROMIDE [Concomitant]
  2. HYOSCINE HBR HYT [Concomitant]
  3. VOLTAREN [Suspect]
     Route: 030

REACTIONS (1)
  - DEATH [None]
